FAERS Safety Report 10345954 (Version 4)
Quarter: 2015Q1

REPORT INFORMATION
  Report Type: Spontaneous
  Country: US (occurrence: US)
  Receive Date: 20140728
  Receipt Date: 20150224
  Transmission Date: 20150720
  Serious: No
  Sender: FDA-Public Use
  Company Number: US-GILEAD-2014-0109733

PATIENT
  Age: 58 Year
  Sex: Female

DRUGS (4)
  1. LETAIRIS [Suspect]
     Active Substance: AMBRISENTAN
     Indication: SARCOIDOSIS
     Dosage: 10 MG, QD
     Route: 065
     Dates: start: 20140627
  2. REVATIO [Concomitant]
     Active Substance: SILDENAFIL CITRATE
  3. LETAIRIS [Suspect]
     Active Substance: AMBRISENTAN
     Indication: PULMONARY HYPERTENSION
     Dosage: 5 MG, QD
     Route: 065
     Dates: start: 20140707
  4. LETAIRIS [Suspect]
     Active Substance: AMBRISENTAN
     Dates: start: 20140708

REACTIONS (13)
  - Tinnitus [Unknown]
  - Arthralgia [Unknown]
  - Pain [Unknown]
  - Myalgia [Unknown]
  - Fall [Unknown]
  - Back pain [Unknown]
  - Muscular weakness [Unknown]
  - Nausea [Unknown]
  - Dizziness [Unknown]
  - Orthostatic hypotension [Unknown]
  - Injury [Unknown]
  - Vomiting [Unknown]
  - Malaise [Unknown]

NARRATIVE: CASE EVENT DATE: 2014
